FAERS Safety Report 26001005 (Version 2)
Quarter: 2025Q4

REPORT INFORMATION
  Report Type: Spontaneous
  Country: TW (occurrence: TW)
  Receive Date: 20251105
  Receipt Date: 20251113
  Transmission Date: 20260118
  Serious: Yes (Hospitalization)
  Sender: BAYER HEALTHCARE PHARMACEUTICALS INC.
  Company Number: TW-BAYER-2025A146041

PATIENT
  Age: 57 Year
  Sex: Male

DRUGS (1)
  1. XOFIGO [Suspect]
     Active Substance: RADIUM RA-223 DICHLORIDE
     Dosage: 5 INJECTIONS IN TOTAL
     Dates: start: 20250711, end: 20251003

REACTIONS (2)
  - Fracture [None]
  - Fall [None]

NARRATIVE: CASE EVENT DATE: 20250901
